FAERS Safety Report 19520010 (Version 7)
Quarter: 2021Q3

REPORT INFORMATION
  Report Type: Report from Study
  Country: ES (occurrence: ES)
  Receive Date: 20210712
  Receipt Date: 20210916
  Transmission Date: 20211014
  Serious: Yes (Hospitalization)
  Sender: FDA-Public Use
  Company Number: ES-ROCHE-2803349

PATIENT
  Age: 68 Year
  Sex: Female
  Weight: 50.05 kg

DRUGS (15)
  1. PARACETAMOL [Concomitant]
     Active Substance: ACETAMINOPHEN
     Route: 048
     Dates: start: 20210703
  2. ATEZOLIZUMAB. [Suspect]
     Active Substance: ATEZOLIZUMAB
     Indication: MALIGNANT NEOPLASM OF UNKNOWN PRIMARY SITE
     Dosage: TREATMENT STUDY DRUG.?ON 15/JUN/2021, SHE RECEIVED LAST DOSE OF TREATMENT STUDY DRUG PRIOR TO ONSET
     Route: 041
     Dates: start: 20210615
  3. CARBOPLATIN. [Suspect]
     Active Substance: CARBOPLATIN
     Indication: MALIGNANT NEOPLASM OF UNKNOWN PRIMARY SITE
     Dosage: INTRAVENOUSLY AT THE AREA UNDER THE CURVE (AUC) DOSE ONCE EVERY 3 WEEKS FOR UP TO 9 CYCLES (CYCLE =
     Route: 042
     Dates: start: 20210316
  4. FENTANYL. [Concomitant]
     Active Substance: FENTANYL
     Dosage: PATCH
     Route: 062
  5. NALOXEGOL [Concomitant]
     Active Substance: NALOXEGOL
     Indication: CONSTIPATION
     Route: 048
     Dates: start: 20210223
  6. PARAFFIN;SODIUM PICOSULFATE [Concomitant]
     Indication: CONSTIPATION
     Route: 048
     Dates: start: 20210223
  7. METOCLOPRAMIDE. [Concomitant]
     Active Substance: METOCLOPRAMIDE
     Indication: NAUSEA
     Route: 048
     Dates: start: 20210705, end: 20210705
  8. FENTANYL. [Concomitant]
     Active Substance: FENTANYL
     Route: 048
     Dates: start: 20210311
  9. COVID?19 VACCINE MRNA [Concomitant]
     Indication: PROPHYLAXIS
     Route: 030
     Dates: start: 20210512, end: 20210512
  10. PARACETAMOL [Concomitant]
     Active Substance: ACETAMINOPHEN
     Indication: HEAD INJURY
     Dosage: IF REQUIRED
     Route: 048
     Dates: start: 20210412
  11. METAMIZOLE [Concomitant]
     Active Substance: METAMIZOLE
     Route: 048
     Dates: end: 20210310
  12. GEMCITABINE. [Suspect]
     Active Substance: GEMCITABINE
     Indication: MALIGNANT NEOPLASM OF UNKNOWN PRIMARY SITE
     Dosage: INTRAVENOUSLY, 1000 MG/M^2, TWICE EVERY THREE WEEKS FOR UP TO 9 CYCLES (CYCLE = 21 DAYS)?ON 23/MAR/
     Route: 042
     Dates: start: 20210323
  13. GEMCITABINE. [Suspect]
     Active Substance: GEMCITABINE
     Dosage: TREATMENT STUDY DRUG?ON 22/JUN/2021, SHE RECEIVED MOST RECENT DOSE OF OF STUDY DRUG PRIOR TO ONSET O
     Route: 042
     Dates: start: 20210622
  14. CARBOPLATIN. [Suspect]
     Active Substance: CARBOPLATIN
     Dosage: TREATMENT STUDY DRUG?ON 15/JUN/2021, SHE RECEIVED LAST DOSE (510 MG) PRIOR TO SAE/AE ONSET.
     Route: 042
     Dates: start: 20210615
  15. MOVICOL [Concomitant]
     Active Substance: POLYETHYLENE GLYCOL 3350\POTASSIUM CHLORIDE\SODIUM BICARBONATE\SODIUM CHLORIDE
     Indication: CONSTIPATION
     Dates: start: 20210707

REACTIONS (2)
  - Haematotoxicity [Recovered/Resolved]
  - Toxicity to various agents [Recovered/Resolved]

NARRATIVE: CASE EVENT DATE: 20210327
